FAERS Safety Report 26037105 (Version 2)
Quarter: 2025Q4

REPORT INFORMATION
  Report Type: Spontaneous
  Country: EU (occurrence: None)
  Receive Date: 20251112
  Receipt Date: 20251204
  Transmission Date: 20260118
  Serious: Yes (Hospitalization, Other)
  Sender: B. BRAUN MEDICAL INC.
  Company Number: EU-EMA-DD-20251029-7482675-062227

PATIENT
  Age: 34 Year
  Sex: Male

DRUGS (13)
  1. ACETAMINOPHEN [Suspect]
     Active Substance: ACETAMINOPHEN
     Indication: Abdominal pain
  2. CANNABIS SATIVA SUBSP. INDICA TOP [Suspect]
     Active Substance: CANNABIS SATIVA SUBSP. INDICA TOP
     Indication: Abdominal pain
     Dosage: STARTING AT A DOSE OF 0.2 G/DAY OF VAPORIZED HERB
  3. METAMIZOLE [Suspect]
     Active Substance: METAMIZOLE
     Indication: Thunderclap headache
  4. METAMIZOLE [Suspect]
     Active Substance: METAMIZOLE
     Dosage: 4 ? 1 G
  5. OXYCODONE HYDROCHLORIDE [Suspect]
     Active Substance: OXYCODONE HYDROCHLORIDE
     Indication: Abdominal pain
     Route: 048
  6. OXYCODONE HYDROCHLORIDE [Suspect]
     Active Substance: OXYCODONE HYDROCHLORIDE
     Dosage: 100 MILLIGRAM, BID
     Route: 048
  7. OXYCODONE HYDROCHLORIDE [Suspect]
     Active Substance: OXYCODONE HYDROCHLORIDE
     Dosage: 60 MILLIGRAM, BID
     Route: 048
  8. QUETIAPINE [Suspect]
     Active Substance: QUETIAPINE
     Indication: Abdominal pain
     Dosage: QUETIAPINE 2 X 25 MG
  9. SERTRALINE [Suspect]
     Active Substance: SERTRALINE HYDROCHLORIDE
     Indication: Abdominal pain
  10. QUETIAPINE [Suspect]
     Active Substance: QUETIAPINE
  11. KETOPROFEN [Concomitant]
     Active Substance: KETOPROFEN
     Indication: Thunderclap headache
     Route: 048
  12. FENTANYL [Concomitant]
     Active Substance: FENTANYL
     Indication: Breakthrough pain
     Dosage: IF NECESSARY
  13. LACTULOSE [Concomitant]
     Active Substance: LACTULOSE
     Indication: Constipation
     Dosage: HE WAS ADDITIONALLY GIVEN LACTULOSE 3 X 15 ML

REACTIONS (3)
  - Drug interaction [Recovered/Resolved]
  - Condition aggravated [Recovered/Resolved]
  - Visceral pain [Recovered/Resolved]
